FAERS Safety Report 7091206-4 (Version None)
Quarter: 2010Q4

REPORT INFORMATION
  Report Type: 
  Country: None (occurrence: None)
  Receive Date: 20101109
  Receipt Date: 20101028
  Transmission Date: 20110411
  Serious: Yes (Hospitalization, Other)
  Sender: FDA-Public Use
  Company Number: PHHY2010JP00693

PATIENT
  Age: 16 Year
  Sex: Male

DRUGS (4)
  1. SANDIMMUNE [Suspect]
     Indication: COLITIS ULCERATIVE
     Dosage: 141 MG, UNK
     Route: 042
     Dates: start: 20090324, end: 20090408
  2. PREDNISOLONE [Concomitant]
     Dosage: 15 MG
     Route: 048
  3. MUCOSTA [Concomitant]
     Dosage: 50ML
     Dates: start: 20090201
  4. AZATHIOPRINE [Concomitant]
     Dosage: 25 MG
     Route: 048
     Dates: start: 20090301

REACTIONS (9)
  - ABDOMINAL SYMPTOM [None]
  - COLITIS ULCERATIVE [None]
  - DRUG INEFFECTIVE [None]
  - ENTEROSTOMY [None]
  - GASTROINTESTINAL SURGERY [None]
  - GINGIVAL HYPERPLASIA [None]
  - GINGIVAL SWELLING [None]
  - ORAL PAIN [None]
  - STOMATITIS [None]
